FAERS Safety Report 6633998-1 (Version None)
Quarter: 2010Q1

REPORT INFORMATION
  Report Type: 
  Country: None (occurrence: None)
  Receive Date: 20100315
  Receipt Date: 20100302
  Transmission Date: 20100710
  Serious: Yes (Hospitalization)
  Sender: FDA-Public Use
  Company Number: PHHY2010FR13151

PATIENT
  Age: 89 Year
  Sex: Male

DRUGS (3)
  1. RASILEZ [Suspect]
     Dosage: 300 MG
  2. RASILEZ [Suspect]
     Dosage: 150 MG
  3. TAREG [Concomitant]
     Dosage: UNK

REACTIONS (3)
  - DIARRHOEA [None]
  - GASTROENTERITIS CLOSTRIDIAL [None]
  - INFECTION [None]
